FAERS Safety Report 24105323 (Version 1)
Quarter: 2024Q3

REPORT INFORMATION
  Report Type: Spontaneous
  Country: US (occurrence: None)
  Receive Date: 20240716
  Receipt Date: 20240716
  Transmission Date: 20241016
  Serious: No
  Sender: Public
  Company Number: None

PATIENT
  Age: 19 Year
  Sex: Male
  Weight: 150.3 kg

DRUGS (10)
  1. DUPIXENT [Suspect]
     Active Substance: DUPILUMAB
     Indication: Dermatitis atopic
     Dosage: OTHER FREQUENCY : EVERY 2 WEEKS;?
     Route: 058
     Dates: start: 20230327
  2. ALBUTEROL [Concomitant]
     Active Substance: ALBUTEROL
  3. CETIRIZINE [Concomitant]
  4. CLOBETASOL [Concomitant]
     Active Substance: CLOBETASOL
  5. MELATONIN [Concomitant]
  6. DULERA [Concomitant]
     Indication: Dermatitis atopic
  7. MUPIROCIN [Concomitant]
     Active Substance: MUPIROCIN
  8. OLOPATADINE [Concomitant]
  9. TACROLIMUS [Concomitant]
  10. TRETINOIN [Concomitant]

REACTIONS (3)
  - Skin exfoliation [None]
  - Skin exfoliation [None]
  - Palmar erythema [None]

NARRATIVE: CASE EVENT DATE: 20240621
